FAERS Safety Report 5979341-2 (Version None)
Quarter: 2008Q4

REPORT INFORMATION
  Report Type: 
  Country: None (occurrence: None)
  Receive Date: 20081204
  Receipt Date: 20081126
  Transmission Date: 20090506
  Serious: Yes (Other)
  Sender: FDA-Public Use
  Company Number: DK-GENENTECH-272602

PATIENT

DRUGS (18)
  1. RITUXAN [Suspect]
     Indication: MANTLE CELL LYMPHOMA
     Dosage: 375 MG/M2, UNK
     Route: 042
  2. CYCLOPHOSPHAMIDE [Suspect]
     Indication: MANTLE CELL LYMPHOMA
     Dosage: 1200 MG/M2, UNK
     Route: 042
  3. DOXORUBICIN HCL [Suspect]
     Indication: MANTLE CELL LYMPHOMA
     Dosage: 75 MG/M2, UNK
     Route: 042
  4. VINCRISTINE [Suspect]
     Indication: MANTLE CELL LYMPHOMA
     Dosage: 2 MG, UNK
     Route: 042
  5. PREDNISONE TAB [Suspect]
     Indication: MANTLE CELL LYMPHOMA
     Dosage: 100 MG, UNK
     Route: 048
  6. CYTARABINE [Suspect]
     Indication: MANTLE CELL LYMPHOMA
     Dosage: 3 G, UNK
     Route: 042
  7. CARMUSTINE [Suspect]
     Indication: MANTLE CELL LYMPHOMA
     Route: 042
  8. CYTARABINE [Suspect]
     Route: 042
  9. ETOPOSIDE [Suspect]
     Indication: MANTLE CELL LYMPHOMA
     Route: 042
  10. MELPHALAN [Suspect]
     Indication: MANTLE CELL LYMPHOMA
     Route: 042
  11. BLEOMYCIN SULFATE [Suspect]
     Indication: MANTLE CELL LYMPHOMA
     Route: 042
  12. CYCLOPHOSPHAMIDE [Suspect]
     Route: 042
  13. DOXORUBICIN HCL [Suspect]
     Route: 042
  14. ETOPOSIDE [Suspect]
     Route: 042
  15. PREDNISONE TAB [Suspect]
     Route: 042
  16. PROCARBAZINE [Suspect]
     Indication: MANTLE CELL LYMPHOMA
     Route: 042
  17. VINCRISTINE [Suspect]
     Route: 042
  18. NEUPOGEN [Concomitant]
     Indication: DRUG USE FOR UNKNOWN INDICATION

REACTIONS (1)
  - BREAST CANCER [None]
